FAERS Safety Report 9681843 (Version 1)
Quarter: 2013Q4

REPORT INFORMATION
  Report Type: Spontaneous
  Country: US (occurrence: US)
  Receive Date: 20131111
  Receipt Date: 20131111
  Transmission Date: 20140711
  Serious: No
  Sender: FDA-Public Use
  Company Number: US-PFIZER INC-2013321080

PATIENT
  Sex: Female
  Weight: 56.69 kg

DRUGS (2)
  1. EFFEXOR XR [Suspect]
     Indication: ANXIETY DISORDER
     Dosage: 112.5 MG, UNK
     Dates: start: 201310
  2. SEASONALE [Concomitant]
     Indication: ORAL CONTRACEPTION
     Dosage: UNK
     Route: 048

REACTIONS (2)
  - Visual field defect [Recovered/Resolved]
  - Vision blurred [Recovered/Resolved]
